FAERS Safety Report 17497978 (Version 3)
Quarter: 2020Q3

REPORT INFORMATION
  Report Type: Spontaneous
  Country: DE (occurrence: DE)
  Receive Date: 20200304
  Receipt Date: 20200720
  Transmission Date: 20201102
  Serious: Yes (Other)
  Sender: FDA-Public Use
  Company Number: NVSC2020DE054617

PATIENT
  Age: 51 Year
  Sex: Female
  Weight: 72 kg

DRUGS (6)
  1. L?THYROX [Concomitant]
     Active Substance: LEVOTHYROXINE SODIUM
     Indication: THYROID DISORDER
     Dosage: 88 UG, QD
     Route: 048
     Dates: start: 201608
  2. DEKRISTOL [Concomitant]
     Active Substance: CHOLECALCIFEROL
     Indication: VITAMIN SUPPLEMENTATION
     Dosage: 20000 IU, QW(VITAMIN D PROPHYLAXIS)
     Route: 048
     Dates: start: 201611
  3. METYPRED [Suspect]
     Active Substance: METHYLPREDNISOLONE
     Indication: PREMEDICATION
     Dosage: 250 MG, QD
     Route: 042
     Dates: start: 20180927
  4. DIMETINDENE MALEATE [Suspect]
     Active Substance: DIMETHINDENE MALEATE
     Indication: PREMEDICATION
     Dosage: 1 MG, QD (AMPOULE)
     Route: 042
     Dates: start: 20180927
  5. OCRELIZUMAB. [Suspect]
     Active Substance: OCRELIZUMAB
     Indication: MULTIPLE SCLEROSIS
     Dosage: 300 MG, QD
     Route: 042
     Dates: start: 20180927
  6. RANITIC INJEKT [Suspect]
     Active Substance: RANITIDINE HYDROCHLORIDE
     Indication: PREMEDICATION
     Dosage: 5 ML, QD
     Route: 042
     Dates: start: 20180927

REACTIONS (4)
  - Circulatory collapse [Recovered/Resolved]
  - Mental fatigue [Not Recovered/Not Resolved]
  - Nausea [Recovered/Resolved]
  - Hypotension [Recovered/Resolved]

NARRATIVE: CASE EVENT DATE: 20180927
